FAERS Safety Report 8446228-5 (Version None)
Quarter: 2012Q2

REPORT INFORMATION
  Report Type: 
  Country: None (occurrence: None)
  Receive Date: 20120618
  Receipt Date: 20120611
  Transmission Date: 20120825
  Serious: Yes (Death, Hospitalization, Other)
  Sender: FDA-Public Use
  Company Number: US-TEVA-342793USA

PATIENT
  Age: 69 Year
  Sex: Male

DRUGS (9)
  1. GABAPENTIN [Concomitant]
     Route: 065
  2. CLOPIDOGREL [Concomitant]
     Route: 065
  3. LISINOPRIL [Concomitant]
     Route: 065
  4. ROSUVASTATIN [Concomitant]
     Route: 065
  5. METFORMIN HCL [Suspect]
     Route: 065
  6. METOPROLOL SUCCINATE [Concomitant]
     Route: 065
  7. GLIPIZIDE [Concomitant]
     Route: 065
  8. SERTRALINE HYDROCHLORIDE [Concomitant]
     Route: 065
  9. OMEPRAZOLE [Concomitant]
     Route: 065

REACTIONS (2)
  - LACTIC ACIDOSIS [None]
  - HYPERKALAEMIA [None]
